FAERS Safety Report 22317088 (Version 1)
Quarter: 2023Q2

REPORT INFORMATION
  Report Type: Spontaneous
  Country: US (occurrence: US)
  Receive Date: 20230514
  Receipt Date: 20230514
  Transmission Date: 20230721
  Serious: Yes (Other)
  Sender: FDA-Public Use
  Company Number: US-ESPERIONTHERAPEUTICS-2023USA00483

PATIENT
  Sex: Male

DRUGS (10)
  1. NEXLETOL [Suspect]
     Active Substance: BEMPEDOIC ACID
     Indication: Drug intolerance
     Dosage: 180 MILLIGRAM, QD
     Route: 065
  2. NEXLETOL [Suspect]
     Active Substance: BEMPEDOIC ACID
     Dosage: 90 MILLIGRAM (HALF TABLET), QD
     Route: 065
     Dates: start: 202305
  3. GABAPENTIN [Concomitant]
     Active Substance: GABAPENTIN
     Dosage: UNKNOWN
     Route: 065
  4. METHOCARBAMOL [Concomitant]
     Active Substance: METHOCARBAMOL
     Dosage: UNKNOWN
     Route: 065
  5. MELOXICAM [Concomitant]
     Active Substance: MELOXICAM
     Dosage: UNKNOWN
     Route: 065
  6. LOSARTAN [Concomitant]
     Active Substance: LOSARTAN
     Dosage: UNKNOWN
     Route: 065
  7. VITAMINS [Concomitant]
     Active Substance: VITAMINS
     Dosage: UNKNOWN
     Route: 065
  8. ZOLPIDEM [Concomitant]
     Active Substance: ZOLPIDEM TARTRATE
     Dosage: UNKNOWN
     Route: 065
  9. FINASTERIDE [Concomitant]
     Active Substance: FINASTERIDE
     Dosage: UNKNOWN
     Route: 065
  10. TAMSULOSIN [Concomitant]
     Active Substance: TAMSULOSIN
     Dosage: UNKNOWN
     Route: 065

REACTIONS (7)
  - Intervertebral disc disorder [Unknown]
  - Arthralgia [Recovering/Resolving]
  - Muscular weakness [Not Recovered/Not Resolved]
  - Hypervigilance [Not Recovered/Not Resolved]
  - Insomnia [Not Recovered/Not Resolved]
  - Dizziness [Unknown]
  - Pain in extremity [Recovering/Resolving]
